FAERS Safety Report 24912670 (Version 2)
Quarter: 2025Q2

REPORT INFORMATION
  Report Type: Spontaneous
  Country: FR (occurrence: FR)
  Receive Date: 20250131
  Receipt Date: 20250521
  Transmission Date: 20250716
  Serious: Yes (Death, Other)
  Sender: GILEAD
  Company Number: None

PATIENT
  Age: 76 Year
  Sex: Male
  Weight: 84.3 kg

DRUGS (6)
  1. YESCARTA [Suspect]
     Active Substance: AXICABTAGENE CILOLEUCEL
     Indication: Diffuse large B-cell lymphoma
     Route: 042
     Dates: start: 20241209, end: 20241209
  2. YESCARTA [Suspect]
     Active Substance: AXICABTAGENE CILOLEUCEL
     Indication: Lymphoma
  3. TYENNE [Suspect]
     Active Substance: TOCILIZUMAB-AAZG
     Indication: Cytokine release syndrome
     Route: 042
     Dates: start: 20241210, end: 20241212
  4. PIPERACILLIN AND TAZOBACTAM [Suspect]
     Active Substance: PIPERACILLIN SODIUM\TAZOBACTAM SODIUM
     Indication: Pyrexia
     Dosage: KABI 4 G/500 MG, POUDRE POUR SOLUTION INJECTABLE OU POUR PERFUSION 16 G, QD
     Route: 042
     Dates: start: 20241210, end: 20241216
  5. PANTOPRAZOLE SODIUM [Suspect]
     Active Substance: PANTOPRAZOLE SODIUM
     Indication: Product used for unknown indication
     Route: 048
     Dates: start: 20241203
  6. VIDAZA [Concomitant]
     Active Substance: AZACITIDINE

REACTIONS (1)
  - Toxic epidermal necrolysis [Fatal]

NARRATIVE: CASE EVENT DATE: 20241215
